FAERS Safety Report 6812805-8 (Version None)
Quarter: 2010Q3

REPORT INFORMATION
  Report Type: 
  Country: None (occurrence: None)
  Receive Date: 20100701
  Receipt Date: 20100622
  Transmission Date: 20110219
  Serious: Yes (Hospitalization, Other)
  Sender: FDA-Public Use
  Company Number: B0662956A

PATIENT
  Age: 59 Year
  Sex: Female

DRUGS (2)
  1. AUGMENTIN '125' [Suspect]
     Indication: LIVER ABSCESS
     Dosage: 3U PER DAY
     Route: 048
     Dates: start: 20100317, end: 20100401
  2. CIPROXIN [Concomitant]
     Indication: LIVER ABSCESS
     Dosage: 2U PER DAY
     Route: 048
     Dates: start: 20100317

REACTIONS (6)
  - ANGIOEDEMA [None]
  - EYELID OEDEMA [None]
  - HYPERSENSITIVITY [None]
  - LIP SWELLING [None]
  - RASH PRURITIC [None]
  - URTICARIA [None]
